FAERS Safety Report 9789931 (Version 1)
Quarter: 2013Q4

REPORT INFORMATION
  Report Type: Spontaneous
  Country: US (occurrence: None)
  Receive Date: 20131230
  Receipt Date: 20131230
  Transmission Date: 20140711
  Serious: No
  Sender: FDA-Public Use
  Company Number: None

PATIENT
  Age: 19 Year
  Sex: Female
  Weight: 55.34 kg

DRUGS (1)
  1. FLUCONAZOLE [Suspect]
     Indication: VULVOVAGINAL PRURITUS
     Dosage: 2 PILLS, 1 TAB EVERY 3 DAYS, TAKEN BY MOUTH
     Route: 048
     Dates: start: 20131224, end: 20131227

REACTIONS (1)
  - Urinary tract infection [None]
